FAERS Safety Report 7325053-2 (Version None)
Quarter: 2011Q1

REPORT INFORMATION
  Report Type: 
  Country: None (occurrence: None)
  Receive Date: 20110302
  Receipt Date: 20110223
  Transmission Date: 20110831
  Serious: Yes (Hospitalization, Other)
  Sender: FDA-Public Use
  Company Number: US-ASTRAZENECA-2007UW06358

PATIENT
  Age: 60 Year
  Sex: Male

DRUGS (32)
  1. SEROQUEL [Suspect]
     Indication: POST-TRAUMATIC STRESS DISORDER
     Dosage: 25 - 75 MG
     Route: 048
     Dates: start: 20040413
  2. CRESTOR [Concomitant]
     Dates: start: 20060901
  3. NEURONTIN [Concomitant]
     Dosage: 800 TID
     Dates: start: 20060901
  4. NORTRIPTYLINE [Concomitant]
     Dosage: 75 MG CAPSULE DISPENSED
     Route: 048
     Dates: start: 20080807
  5. PRAVACHOL [Concomitant]
     Route: 048
     Dates: start: 20081113
  6. CYMBALTA [Concomitant]
     Dosage: 60 MG CAPSULE DISPENSED
     Route: 048
     Dates: start: 20080807
  7. DETROL LA [Concomitant]
     Dosage: 4 MG CAPSULE DISPENSED
     Route: 048
     Dates: start: 20080807
  8. NEURONTIN [Concomitant]
     Dosage: 800 MG TABLET DISPENSED
     Route: 048
     Dates: start: 20080807
  9. NORTRIPTYLINE [Concomitant]
     Dosage: 75 MG CAPSULE DISPENSED
     Route: 048
     Dates: start: 20080807
  10. FLOMAX [Concomitant]
     Dosage: 0.4 DA
     Dates: start: 20060901
  11. NEXIUM [Concomitant]
     Dosage: 40 MG CAPSULE DISPENSED
     Route: 048
     Dates: start: 20080807
  12. ALTACE [Concomitant]
     Dates: start: 20060901
  13. NEURONTIN [Concomitant]
     Dosage: 800 MG TABLET DISPENSED
     Route: 048
     Dates: start: 20080807
  14. NEURONTIN [Concomitant]
     Dosage: 800 MG TABLET DISPENSED
     Route: 048
     Dates: start: 20080807
  15. PREVACID [Concomitant]
     Dates: start: 20040517
  16. CRESTOR [Concomitant]
     Route: 048
     Dates: start: 20080807, end: 20081113
  17. NEURONTIN [Concomitant]
     Dosage: 800 TID
     Dates: start: 20060901
  18. NEURONTIN [Concomitant]
     Dosage: 800 TID
     Dates: start: 20060901
  19. NORTRIPTYLINE [Concomitant]
     Indication: SLEEP DISORDER
     Dosage: 50-500 MG AT BED TIME
     Dates: start: 20030402
  20. CELEBREX [Concomitant]
     Dates: start: 20060901
  21. PREVACID [Concomitant]
     Dates: start: 20060901
  22. ALTACE [Concomitant]
     Dates: start: 20040413
  23. NEURONTIN [Concomitant]
     Indication: AFFECTIVE DISORDER
     Dosage: 800-1800 MG THREE TIMES A DAY
     Dates: start: 20030402
  24. NEURONTIN [Concomitant]
     Indication: TREMOR
     Dosage: 800-1800 MG THREE TIMES A DAY
     Dates: start: 20030402
  25. NORTRIPTYLINE [Concomitant]
     Dosage: 50 DA
     Dates: start: 20060901
  26. LITHOBID [Concomitant]
     Dosage: 600 MG-900 MG
     Dates: start: 19981101, end: 20030201
  27. ALTACE [Concomitant]
     Dosage: 5 MG CAPSULE DISPENSED
     Route: 048
     Dates: start: 20080807
  28. ASPIRIN [Concomitant]
     Dosage: 325 MG TABLET DISPENSED
     Route: 048
     Dates: start: 20080807
  29. NEURONTIN [Concomitant]
     Indication: NEURALGIA
     Dosage: 800-1800 MG THREE TIMES A DAY
     Dates: start: 20030402
  30. NORTRIPTYLINE [Concomitant]
     Indication: PAIN
     Dosage: 50-500 MG AT BED TIME
     Dates: start: 20030402
  31. NORTRIPTYLINE [Concomitant]
     Dosage: 50 DA
     Dates: start: 20060901
  32. GLIMEPIRIDE [Concomitant]
     Route: 048
     Dates: start: 20081113

REACTIONS (19)
  - DEAFNESS [None]
  - TYPE 2 DIABETES MELLITUS [None]
  - DYSPNOEA [None]
  - BLOOD CHOLESTEROL INCREASED [None]
  - OPTIC NEUROPATHY [None]
  - PUPILLARY REFLEX IMPAIRED [None]
  - PANCREATITIS [None]
  - CATARACT NUCLEAR [None]
  - COUGH [None]
  - BLINDNESS [None]
  - DIVERTICULITIS [None]
  - ABDOMINAL PAIN UPPER [None]
  - PERIPHERAL VASCULAR DISORDER [None]
  - BACK DISORDER [None]
  - VISUAL ACUITY REDUCED [None]
  - CATARACT [None]
  - CATARACT CORTICAL [None]
  - BENIGN PROSTATIC HYPERPLASIA [None]
  - VERTIGO [None]
